FAERS Safety Report 8421954-2 (Version None)
Quarter: 2012Q2

REPORT INFORMATION
  Report Type: 
  Country: None (occurrence: None)
  Receive Date: 20120605
  Receipt Date: 20120605
  Transmission Date: 20120825
  Serious: No
  Sender: FDA-Public Use
  Company Number: None

PATIENT

DRUGS (1)
  1. APLISOL [Suspect]
     Indication: MYCOBACTERIUM TUBERCULOSIS COMPLEX TEST
     Dosage: 0.1 ML ONCE ID
     Route: 023

REACTIONS (1)
  - INJECTION SITE URTICARIA [None]
